FAERS Safety Report 23303671 (Version 1)
Quarter: 2023Q4

REPORT INFORMATION
  Report Type: Spontaneous
  Country: US (occurrence: None)
  Receive Date: 20231214
  Receipt Date: 20231214
  Transmission Date: 20240109
  Serious: No
  Sender: FDA-Public Use
  Company Number: None

PATIENT
  Age: 61 Year
  Sex: Female
  Weight: 74.25 kg

DRUGS (1)
  1. MOTRIN IB MIGRAINE [Suspect]
     Active Substance: IBUPROFEN
     Indication: Migraine
     Dosage: OTHER QUANTITY : 80 CAPSULE(S);?FREQUENCY : DAILY;?
     Route: 048
     Dates: start: 20231214, end: 20231214

REACTIONS (1)
  - Product label confusion [None]

NARRATIVE: CASE EVENT DATE: 20231214
